FAERS Safety Report 4708370-1 (Version None)
Quarter: 2005Q3

REPORT INFORMATION
  Report Type: 
  Country: None (occurrence: None)
  Receive Date: 20050706
  Receipt Date: 20050624
  Transmission Date: 20060218
  Serious: Yes (Hospitalization)
  Sender: FDA-Public Use
  Company Number: KII-2005-0017263

PATIENT
  Age: 6 Year
  Sex: Female

DRUGS (1)
  1. OXYCODONE HCL [Suspect]
     Dosage: ORAL
     Route: 048
     Dates: start: 20050604, end: 20050604

REACTIONS (4)
  - MEDICATION ERROR [None]
  - SEPSIS [None]
  - SOMNOLENCE [None]
  - VOMITING [None]
